FAERS Safety Report 9185132 (Version 1)
Quarter: 2012Q4

REPORT INFORMATION
  Report Type: 
  Country: BR (occurrence: BR)
  Receive Date: 20121101
  Receipt Date: 20121101
  Transmission Date: 20130627
  Serious: Yes (Hospitalization, Other)
  Sender: FDA-Public Use
  Company Number: BR-009507513-1210BRA014557

PATIENT
  Age: 51 None
  Sex: Female
  Weight: 55 kg

DRUGS (3)
  1. VICTRELIS [Suspect]
     Indication: HEPATITIS C
     Dosage: 800 mg, tid
     Route: 048
     Dates: start: 20121026, end: 20121029
  2. INTERFERON (UNSPECIFIED) [Concomitant]
     Indication: HEPATITIS C
     Dosage: 0.57 mg, qw
     Dates: start: 20120928, end: 20121029
  3. RIBAVIRIN [Concomitant]
     Indication: HEPATITIS C
     Dosage: 250 mg, bid
     Dates: start: 20120928, end: 20121029

REACTIONS (8)
  - Pancreatitis [Recovering/Resolving]
  - Blood pressure abnormal [Recovering/Resolving]
  - Swelling [Recovering/Resolving]
  - Nausea [Recovering/Resolving]
  - Decreased appetite [Recovering/Resolving]
  - Dysgeusia [Recovering/Resolving]
  - Weight decreased [Recovering/Resolving]
  - Anaemia [Recovering/Resolving]
